FAERS Safety Report 6263494-5 (Version None)
Quarter: 2009Q3

REPORT INFORMATION
  Report Type: 
  Country: None (occurrence: None)
  Receive Date: 20090710
  Receipt Date: 20090316
  Transmission Date: 20100115
  Serious: No
  Sender: FDA-Public Use
  Company Number: A0773615A

PATIENT
  Sex: Female

DRUGS (11)
  1. TYKERB [Suspect]
     Indication: BREAST CANCER
     Dosage: 1250MG PER DAY
     Route: 048
     Dates: start: 20090227
  2. XELODA [Concomitant]
     Dosage: 1500MG TWICE PER DAY
  3. VITAMINE C [Concomitant]
  4. IRON [Concomitant]
  5. DOCUSATE [Concomitant]
  6. UNSPECIFIED MEDICATION [Concomitant]
  7. ACIDOPHILUS [Concomitant]
  8. LEVOTHYROXINE SODIUM [Concomitant]
  9. LISINOPRIL [Concomitant]
  10. LORAZEPAM [Concomitant]
  11. SERTRALINE [Concomitant]

REACTIONS (2)
  - DIARRHOEA [None]
  - VOMITING [None]
